FAERS Safety Report 9973550 (Version 2)
Quarter: 2014Q1

REPORT INFORMATION
  Report Type: Spontaneous
  Country: SE (occurrence: SE)
  Receive Date: 20140306
  Receipt Date: 20140306
  Transmission Date: 20141002
  Serious: Yes (Other)
  Sender: FDA-Public Use
  Company Number: SE-BAXTER-2014BAX006189

PATIENT
  Sex: 0

DRUGS (2)
  1. GLUCOS BAXTER 100 MG/ML INFUSIONSV?TSKA, L?SNING [Suspect]
     Indication: MEDICATION ERROR
     Route: 042
     Dates: start: 2013, end: 2013
  2. NATRIUMKLORID BAXTER 9 MG/ML INFUUSIONESTE, LIUOS [Suspect]
     Indication: ARTERIAL THERAPEUTIC PROCEDURE
     Route: 042
     Dates: start: 2013, end: 2013

REACTIONS (3)
  - Wrong drug administered [Recovered/Resolved]
  - Product label confusion [Recovered/Resolved]
  - Blood glucose increased [Recovered/Resolved]
